FAERS Safety Report 4778740-4 (Version None)
Quarter: 2005Q3

REPORT INFORMATION
  Report Type: 
  Country: None (occurrence: None)
  Receive Date: 20050926
  Receipt Date: 20050919
  Transmission Date: 20060218
  Serious: Yes (Other)
  Sender: FDA-Public Use
  Company Number: PHBS2005CO13844

PATIENT
  Age: 65 Year
  Sex: Female

DRUGS (1)
  1. GLEEVEC [Suspect]
     Indication: GASTROINTESTINAL STROMAL TUMOUR
     Dosage: 400 MG/DAY
     Route: 048
     Dates: start: 20040101

REACTIONS (1)
  - THROMBOCYTOPENIC PURPURA [None]
